FAERS Safety Report 4613358-5 (Version None)
Quarter: 2005Q1

REPORT INFORMATION
  Report Type: 
  Country: None (occurrence: None)
  Receive Date: 20050316
  Receipt Date: 20050303
  Transmission Date: 20050727
  Serious: Yes (Other)
  Sender: FDA-Public Use
  Company Number: 2005016784

PATIENT
  Age: 39 Year
  Sex: Female

DRUGS (4)
  1. NICORETTE [Suspect]
     Dosage: TRANSDERMAL
     Route: 062
     Dates: start: 20050101, end: 20050103
  2. REBOXETINE 9REBOXETINE) [Concomitant]
  3. LORAZEPAM [Concomitant]
  4. ZOPICLONE (ZOPLICONE) [Concomitant]

REACTIONS (4)
  - APPLICATION SITE DERMATITIS [None]
  - DERMATITIS CONTACT [None]
  - ECZEMA [None]
  - RASH MACULO-PAPULAR [None]
